FAERS Safety Report 4559732-7 (Version None)
Quarter: 2005Q1

REPORT INFORMATION
  Report Type: 
  Country: None (occurrence: None)
  Receive Date: 20050124
  Receipt Date: 20040923
  Transmission Date: 20050727
  Serious: Yes (Hospitalization, Disabling)
  Sender: FDA-Public Use
  Company Number: US-MERCK-0409USA02072

PATIENT
  Age: 79 Year
  Sex: Female

DRUGS (8)
  1. SINGULAIR [Suspect]
     Indication: ASTHMA
     Route: 048
     Dates: start: 19990101
  2. ZYRTEC [Concomitant]
     Route: 065
  3. SEREVENT DISK [Concomitant]
     Route: 065
  4. NASONEX [Concomitant]
     Route: 065
  5. PREDNISONE [Concomitant]
     Route: 065
  6. AMBIEN [Concomitant]
     Route: 065
  7. NEXIUM [Concomitant]
     Route: 065
  8. DIAZIDE [Concomitant]
     Route: 065

REACTIONS (9)
  - ABDOMINAL PAIN UPPER [None]
  - ANXIETY [None]
  - BREAST CANCER [None]
  - CONTUSION [None]
  - HERNIA [None]
  - POLLAKIURIA [None]
  - RESPIRATORY TRACT INFECTION [None]
  - RHINITIS ALLERGIC [None]
  - SWELLING [None]
